FAERS Safety Report 15418419 (Version 2)
Quarter: 2018Q4

REPORT INFORMATION
  Report Type: Spontaneous
  Country: CH (occurrence: CH)
  Receive Date: 20180924
  Receipt Date: 20181122
  Transmission Date: 20190204
  Serious: Yes (Hospitalization)
  Sender: FDA-Public Use
  Company Number: CH-ASTRAZENECA-2018SF19054

PATIENT
  Age: 735 Month
  Sex: Female

DRUGS (34)
  1. POTASSIUM CITRATE. [Concomitant]
     Active Substance: POTASSIUM CITRATE
     Dates: start: 20180814, end: 20180814
  2. ACLASTA [Concomitant]
     Active Substance: ZOLEDRONIC ACID
  3. ACIDUM FOLICUM [Interacting]
     Active Substance: FOLIC ACID
     Dosage: EXCEPT ON WEDNESDAYS
     Route: 048
     Dates: end: 20180829
  4. VALTREX [Concomitant]
     Active Substance: VALACYCLOVIR HYDROCHLORIDE
     Dates: start: 20180828, end: 20180829
  5. ZITHROMAX [Concomitant]
     Active Substance: AZITHROMYCIN DIHYDRATE
     Dates: start: 20180814, end: 20180816
  6. NUTRIFLEX [Concomitant]
     Active Substance: AMINO ACIDS\CARBOHYDRATES\ELECTROLYTES NOS
  7. METOJECT [Interacting]
     Active Substance: METHOTREXATE SODIUM
     Route: 058
     Dates: end: 20180822
  8. ACICLOVIR [Concomitant]
     Active Substance: ACYCLOVIR
     Dates: start: 20180830, end: 20180902
  9. MORPHINE [Concomitant]
     Active Substance: MORPHINE
     Dosage: AS NECESSARY
  10. NEPHROTRANS [Concomitant]
     Active Substance: SODIUM BICARBONATE
     Dates: start: 20180815, end: 20180826
  11. BENERVA [Concomitant]
     Active Substance: THIAMINE HYDROCHLORIDE
     Dates: start: 20180815, end: 20180818
  12. ENOXAPARIN [Concomitant]
     Active Substance: ENOXAPARIN
     Dates: start: 20180815, end: 20180827
  13. NEXIUM [Interacting]
     Active Substance: ESOMEPRAZOLE MAGNESIUM
     Dosage: 20 MILLIGRAM
     Route: 048
     Dates: start: 20180822, end: 20180824
  14. NEUPOGEN [Concomitant]
     Active Substance: FILGRASTIM
     Dates: start: 20180826, end: 20180826
  15. DAFALGAN [Concomitant]
     Active Substance: ACETAMINOPHEN
     Dates: start: 20180821, end: 20180826
  16. RIOPAN [Concomitant]
     Dates: end: 20180829
  17. KALINOX [Concomitant]
     Active Substance: NITROUS OXIDE\OXYGEN
     Dates: start: 20180828, end: 20180828
  18. RITUXIMAB. [Concomitant]
     Active Substance: RITUXIMAB
     Dates: end: 20180822
  19. NEXIUM [Suspect]
     Active Substance: ESOMEPRAZOLE MAGNESIUM
     Dosage: 40 MILLIGRAM
     Route: 048
     Dates: end: 20180822
  20. PLUS KALIUM [Concomitant]
     Dates: start: 20180824, end: 20180826
  21. LEUCOVORIN. [Concomitant]
     Active Substance: LEUCOVORIN
     Dates: start: 20180828, end: 20180905
  22. CALCIPARINE [Concomitant]
     Active Substance: HEPARIN CALCIUM
     Dates: start: 20180815, end: 20180823
  23. KCL [Concomitant]
     Active Substance: POTASSIUM CHLORIDE
     Dates: start: 20180813, end: 20180814
  24. FUCICORT [Concomitant]
     Active Substance: BETAMETHASONE VALERATE\FUSIDIC ACID
     Dates: start: 20180828, end: 20180830
  25. CEFEPIME [Concomitant]
     Active Substance: CEFEPIME HYDROCHLORIDE
     Dates: start: 20180826, end: 20180830
  26. ELOCOM [Concomitant]
     Active Substance: MOMETASONE FUROATE
     Dates: start: 20180901, end: 20180908
  27. SYMBICORT [Concomitant]
     Active Substance: BUDESONIDE\FORMOTEROL FUMARATE DIHYDRATE
  28. NEUPOGEN [Concomitant]
     Active Substance: FILGRASTIM
     Dates: start: 20180828, end: 20180903
  29. FLUCONAZOLE. [Concomitant]
     Active Substance: FLUCONAZOLE
     Dates: start: 20180830, end: 20180901
  30. SEVREDOL [Concomitant]
     Active Substance: MORPHINE
     Dates: start: 20180821, end: 20180829
  31. ARIXTRA [Concomitant]
     Active Substance: FONDAPARINUX SODIUM
     Dates: start: 20180823, end: 20180827
  32. VENLAFAXINE [Concomitant]
     Active Substance: VENLAFAXINE HYDROCHLORIDE
     Dates: end: 20180829
  33. RESONIUM [Concomitant]
     Active Substance: SODIUM POLYSTYRENE SULFONATE
     Dates: start: 20180828, end: 20180829
  34. CERNEVIT [Concomitant]
     Active Substance: VITAMINS

REACTIONS (9)
  - Skin erosion [Unknown]
  - Toxicity to various agents [Recovered/Resolved]
  - Aplastic anaemia [Recovered/Resolved]
  - Eczema [Unknown]
  - Diarrhoea [Recovered/Resolved]
  - Asthenia [Recovered/Resolved]
  - Genital erosion [Unknown]
  - Drug interaction [Recovered/Resolved]
  - Pancytopenia [Recovered/Resolved]

NARRATIVE: CASE EVENT DATE: 201808
